FAERS Safety Report 5588992-9 (Version None)
Quarter: 2008Q1

REPORT INFORMATION
  Report Type: 
  Country: None (occurrence: None)
  Receive Date: 20080111
  Receipt Date: 20080109
  Transmission Date: 20080703
  Serious: Yes (Hospitalization)
  Sender: FDA-Public Use
  Company Number: AU-MERCK-0801AUS00052

PATIENT
  Sex: Male

DRUGS (10)
  1. VYTORIN [Suspect]
     Indication: METABOLIC DISORDER
     Route: 048
     Dates: end: 20070730
  2. CLOPIDOGREL BISULFATE [Concomitant]
     Indication: MYOCARDIAL ISCHAEMIA
     Route: 065
  3. ESOMEPRAZOLE MAGNESIUM [Concomitant]
     Indication: OESOPHAGEAL DISORDER
     Route: 065
  4. TIOTROPIUM BROMIDE [Concomitant]
     Indication: RESPIRATORY DISORDER
     Route: 065
  5. BUDESONIDE AND FORMOTEROL FUMARATE [Concomitant]
     Indication: RESPIRATORY DISORDER
     Route: 065
  6. MIRTAZAPINE [Concomitant]
     Indication: DEPRESSION
     Route: 065
  7. VITAMINS (UNSPECIFIED) [Concomitant]
     Route: 065
  8. HYDROCHLOROTHIAZIDE AND IRBESARTAN [Concomitant]
     Indication: ESSENTIAL HYPERTENSION
     Route: 065
  9. METOPROLOL [Concomitant]
     Indication: ESSENTIAL HYPERTENSION
     Route: 065
  10. DILTIAZEM HYDROCHLORIDE [Concomitant]
     Indication: MYOCARDIAL ISCHAEMIA
     Route: 065

REACTIONS (8)
  - ALCOHOLIC LIVER DISEASE [None]
  - BLOOD CREATINE PHOSPHOKINASE INCREASED [None]
  - CIRCULATORY COLLAPSE [None]
  - HYPOAESTHESIA [None]
  - MUSCULOSKELETAL PAIN [None]
  - NECK PAIN [None]
  - RHABDOMYOLYSIS [None]
  - VISION BLURRED [None]
